FAERS Safety Report 8133798-X (Version None)
Quarter: 2012Q1

REPORT INFORMATION
  Report Type: 
  Country: None (occurrence: None)
  Receive Date: 20120213
  Receipt Date: 20120213
  Transmission Date: 20120608
  Serious: Yes (Other)
  Sender: FDA-Public Use
  Company Number: None

PATIENT
  Age: 54 Year
  Sex: Female
  Weight: 65.77 kg

DRUGS (2)
  1. SYNTHROID [Concomitant]
     Route: 048
  2. OMEPRAZOLE [Suspect]
     Indication: GASTROOESOPHAGEAL REFLUX DISEASE
     Dosage: ONE PILL
     Route: 048
     Dates: start: 20080401, end: 20120208

REACTIONS (2)
  - HYPERTENSION [None]
  - WEIGHT INCREASED [None]
